FAERS Safety Report 17759266 (Version 2)
Quarter: 2020Q2

REPORT INFORMATION
  Report Type: Spontaneous
  Country: US (occurrence: US)
  Receive Date: 20200508
  Receipt Date: 20200519
  Transmission Date: 20200714
  Serious: No
  Sender: FDA-Public Use
  Company Number: US-009507513-2004USA008595

PATIENT
  Sex: Female

DRUGS (1)
  1. ETONOGESTREL (+) ETHINYL ESTRADIOL [Suspect]
     Active Substance: ETHINYL ESTRADIOL\ETONOGESTREL
     Dosage: A RING
     Route: 067
     Dates: start: 20200425

REACTIONS (2)
  - Abdominal pain upper [Unknown]
  - Back pain [Unknown]

NARRATIVE: CASE EVENT DATE: 20200425
